FAERS Safety Report 7427679-4 (Version None)
Quarter: 2011Q1

REPORT INFORMATION
  Report Type: 
  Country: None (occurrence: None)
  Receive Date: 20110329
  Receipt Date: 20110314
  Transmission Date: 20110831
  Serious: Yes (Death, Disabling)
  Sender: FDA-Public Use
  Company Number: 2010PROUSA00021

PATIENT
  Age: 78 Year
  Sex: Male
  Weight: 70.3 kg

DRUGS (3)
  1. PROVENGE [Suspect]
     Indication: PROSTATE CANCER METASTATIC
     Dosage: 250 ML, SINGLE, INTRAVENOUS
     Route: 042
     Dates: start: 20100701, end: 20100701
  2. PROVENGE [Suspect]
     Dosage: 250ML, SINGLE, INTRAVENOUS
     Route: 042
     Dates: start: 20100715, end: 20100715
  3. PROVENGE [Suspect]
     Dosage: 250 ML, SINGLE, INTRAVENOUS
     Route: 042
     Dates: start: 20100729, end: 20100729

REACTIONS (4)
  - MALAISE [None]
  - WHEELCHAIR USER [None]
  - NEUROMYOPATHY [None]
  - NEURALGIA [None]
